FAERS Safety Report 20462200 (Version 1)
Quarter: 2022Q1

REPORT INFORMATION
  Report Type: Spontaneous
  Country: US (occurrence: US)
  Receive Date: 20220211
  Receipt Date: 20220211
  Transmission Date: 20220423
  Serious: No
  Sender: FDA-Public Use
  Company Number: US-EPIHEALTH-2021-US-006543

PATIENT
  Age: 33 Year
  Sex: Female
  Weight: 72.58 kg

DRUGS (1)
  1. RHOFADE [Suspect]
     Active Substance: OXYMETAZOLINE HYDROCHLORIDE
     Indication: Product used for unknown indication
     Dosage: 1 TIME PER DAY ENOUGH TO RUB INTO THE SKIN OF HER FACE.
     Route: 061
     Dates: start: 20210305, end: 20210310

REACTIONS (13)
  - Application site acne [Recovered/Resolved]
  - Inflammatory marker test [Unknown]
  - Temperature intolerance [Not Recovered/Not Resolved]
  - Application site hypoaesthesia [Unknown]
  - Application site pain [Unknown]
  - Gluten sensitivity [Unknown]
  - Application site erythema [Recovered/Resolved]
  - Application site warmth [Recovered/Resolved]
  - Capillary fragility [Recovered/Resolved]
  - Rosacea [Recovered/Resolved]
  - Peripheral coldness [Recovered/Resolved]
  - Paraesthesia [Recovered/Resolved]
  - Oedema [Unknown]

NARRATIVE: CASE EVENT DATE: 20210301
